FAERS Safety Report 9313090 (Version 1)
Quarter: 2013Q2

REPORT INFORMATION
  Report Type: Spontaneous
  Country: BR (occurrence: BR)
  Receive Date: 20130528
  Receipt Date: 20130528
  Transmission Date: 20140414
  Serious: Yes (Other)
  Sender: FDA-Public Use
  Company Number: PHHY2013BR051379

PATIENT
  Age: 22 Year
  Sex: Male

DRUGS (15)
  1. OXCARBAZEPINA [Suspect]
     Indication: BIPOLAR DISORDER
     Dosage: 600 MG, UKN (AT NIGHT)
     Dates: end: 20120817
  2. DIVALPROEX SODIUM DR [Suspect]
     Indication: BIPOLAR DISORDER
     Dosage: 500 MG, UNK (AT NIGHT)
  3. DIVALPROEX SODIUM DR [Suspect]
     Dosage: 1000 MG, UNK
  4. CLONAZEPAM [Suspect]
     Indication: BIPOLAR DISORDER
     Dosage: 2 MG, (1 TABLET, AT NIGHT)
  5. CLONAZEPAM [Suspect]
     Dosage: 4 MG, QD
  6. OLANZAPINE [Suspect]
     Indication: BIPOLAR DISORDER
     Dosage: 5 MG, UNK (AT NIGHT)
  7. OLANZAPINE [Suspect]
     Dosage: 10 MG, QD
  8. OLANZAPINE [Suspect]
     Dosage: 15 MG, QD
  9. ARIPIPRAZOLE [Suspect]
     Indication: BIPOLAR DISORDER
     Dosage: 1.5 DF, QD
     Dates: end: 20120512
  10. SEROQUEL XR [Suspect]
     Dosage: 300 MG, UNK (AT NIGHT)
  11. SEROQUEL XR [Suspect]
     Dosage: 400 MG, UNK (AT NIGHT)
  12. SEROQUEL XR [Suspect]
     Dosage: 500 MG, UNK (AT NIGHT)
     Dates: end: 20130122
  13. SEROQUEL XR [Suspect]
     Dosage: 450 MG, UNK (AT NIGHT)
  14. LITHIUM CARBONATE [Suspect]
     Indication: BIPOLAR DISORDER
     Dosage: 1200 MG, QD
  15. BIPERIDEN HYDROCHLORIDE [Suspect]
     Indication: BIPOLAR DISORDER
     Dosage: 2 MG, BID

REACTIONS (19)
  - Irritability [Unknown]
  - Excessive masturbation [Unknown]
  - Tachyphrenia [Unknown]
  - Muscle rigidity [Unknown]
  - General physical condition abnormal [Unknown]
  - Sleep disorder [Unknown]
  - Insomnia [Unknown]
  - Aggression [Unknown]
  - Movement disorder [Unknown]
  - Psychomotor hyperactivity [Unknown]
  - Road traffic accident [Unknown]
  - Mental impairment [Unknown]
  - Asthenia [Unknown]
  - Suicidal ideation [Unknown]
  - Somnolence [Unknown]
  - Depressed mood [Unknown]
  - Crying [Unknown]
  - Anxiety [Unknown]
  - Disturbance in attention [Unknown]
